FAERS Safety Report 9510118 (Version 1)
Quarter: 2013Q3

REPORT INFORMATION
  Report Type: Spontaneous
  Country: US (occurrence: US)
  Receive Date: 20130909
  Receipt Date: 20130909
  Transmission Date: 20140515
  Serious: No
  Sender: FDA-Public Use
  Company Number: US-BRISTOL-MYERS SQUIBB COMPANY-18760371

PATIENT
  Age: 16 Year
  Sex: Female
  Weight: 49.89 kg

DRUGS (3)
  1. ABILIFY TABS 5 MG [Suspect]
     Indication: DEPRESSION
     Dosage: PATEINT INITIALY WAS ON 10MG AND 5MG.?N142-19, 90 TABLETS IN BOTTLE.
  2. ABILIFY TABS 5 MG [Suspect]
     Indication: ANGER
     Dosage: PATEINT INITIALY WAS ON 10MG AND 5MG.?N142-19, 90 TABLETS IN BOTTLE.
  3. ZOLOFT [Concomitant]

REACTIONS (7)
  - Product quality issue [Unknown]
  - Abnormal behaviour [Unknown]
  - Aggression [Unknown]
  - Fatigue [Unknown]
  - Wrong technique in drug usage process [Unknown]
  - Somnolence [Unknown]
  - Dysarthria [Unknown]
